FAERS Safety Report 5591236-5 (Version None)
Quarter: 2008Q1

REPORT INFORMATION
  Report Type: 
  Country: None (occurrence: None)
  Receive Date: 20080110
  Receipt Date: 20080110
  Transmission Date: 20080703
  Serious: Yes (Hospitalization)
  Sender: FDA-Public Use
  Company Number: None

PATIENT
  Age: 5 Year

DRUGS (1)
  1. HEP LOCK SOLUTION    SIERRA [Suspect]
     Indication: INDWELLING CATHETER MANAGEMENT
     Dosage: WEEKLY

REACTIONS (6)
  - CATHETER RELATED INFECTION [None]
  - CHILLS [None]
  - LETHARGY [None]
  - PHARMACEUTICAL PRODUCT COMPLAINT [None]
  - PYREXIA [None]
  - SERRATIA INFECTION [None]
